FAERS Safety Report 22778671 (Version 5)
Quarter: 2025Q1

REPORT INFORMATION
  Report Type: Spontaneous
  Country: US (occurrence: US)
  Receive Date: 20230802
  Receipt Date: 20250102
  Transmission Date: 20250408
  Serious: Yes (Hospitalization, Other)
  Sender: PFIZER
  Company Number: US-PFIZER INC-PV202300133280

PATIENT
  Age: 75 Year
  Sex: Female

DRUGS (5)
  1. IBRANCE [Suspect]
     Active Substance: PALBOCICLIB
  2. IBRANCE [Suspect]
     Active Substance: PALBOCICLIB
     Route: 048
  3. IBRANCE [Suspect]
     Active Substance: PALBOCICLIB
     Route: 048
  4. CLEOCIN T [Concomitant]
     Active Substance: CLINDAMYCIN PHOSPHATE
  5. ALDACTONE [Concomitant]
     Active Substance: SPIRONOLACTONE
     Dosage: TAKE 1 TABLET (25 MG TOTAL) BY MOUTH 2 (TWO) TIMES A DAY
     Route: 048

REACTIONS (7)
  - Second primary malignancy [Unknown]
  - Ear neoplasm malignant [Unknown]
  - Ear infection [Unknown]
  - Cytopenia [Unknown]
  - Vomiting [Unknown]
  - Nausea [Unknown]
  - Drug hypersensitivity [Unknown]
